FAERS Safety Report 12757595 (Version 2)
Quarter: 2016Q3

REPORT INFORMATION
  Report Type: Report from Study
  Country: JP (occurrence: JP)
  Receive Date: 20160919
  Receipt Date: 20160922
  Transmission Date: 20161109
  Serious: Yes (Hospitalization)
  Sender: FDA-Public Use
  Company Number: JP-ROCHE-1831335

PATIENT
  Age: 71 Year
  Sex: Male

DRUGS (3)
  1. RANIBIZUMAB [Suspect]
     Active Substance: RANIBIZUMAB
     Indication: NEOVASCULAR AGE-RELATED MACULAR DEGENERATION
     Route: 031
     Dates: start: 20140814
  2. RANIBIZUMAB [Suspect]
     Active Substance: RANIBIZUMAB
     Route: 031
     Dates: start: 20141009, end: 20141009
  3. RANIBIZUMAB [Suspect]
     Active Substance: RANIBIZUMAB
     Route: 031
     Dates: start: 20151009

REACTIONS (1)
  - Macular hole [Recovered/Resolved]

NARRATIVE: CASE EVENT DATE: 20141120
